FAERS Safety Report 9219091 (Version 2)
Quarter: 2013Q2

REPORT INFORMATION
  Report Type: Spontaneous
  Country: US (occurrence: US)
  Receive Date: 20130409
  Receipt Date: 20130409
  Transmission Date: 20140414
  Serious: Yes (Hospitalization)
  Sender: FDA-Public Use
  Company Number: US-ROXANE LABORATORIES, INC.-2013-RO-00452RO

PATIENT
  Age: 36 Year
  Sex: Male
  Weight: 108 kg

DRUGS (3)
  1. PREDNISONE [Suspect]
     Indication: IDIOPATHIC PULMONARY FIBROSIS
  2. HYDROCHLOROTHIAZIDE-LISINOPRIL [Concomitant]
     Dosage: 25 MG
     Route: 048
     Dates: start: 20080914
  3. HYDROCHLOROTHIAZIDE HCTZ [Concomitant]

REACTIONS (1)
  - Chest pain [Recovered/Resolved]
